FAERS Safety Report 22755179 (Version 2)
Quarter: 2024Q2

REPORT INFORMATION
  Report Type: Spontaneous
  Country: BR (occurrence: BR)
  Receive Date: 20230727
  Receipt Date: 20240521
  Transmission Date: 20240715
  Serious: Yes (Other)
  Sender: FDA-Public Use
  Company Number: BR-SA-SAC20230721001069

PATIENT
  Age: 20 Year
  Sex: Male

DRUGS (2)
  1. SABRIL [Suspect]
     Active Substance: VIGABATRIN
     Indication: Intellectual disability
     Dosage: UNK
     Route: 065
  2. SABRIL [Suspect]
     Active Substance: VIGABATRIN
     Indication: Epilepsy
     Route: 065

REACTIONS (6)
  - Dementia [Unknown]
  - Anxiety [Unknown]
  - General physical health deterioration [Unknown]
  - Emotional distress [Unknown]
  - Product use in unapproved indication [Unknown]
  - Poor quality product administered [Unknown]
